FAERS Safety Report 6844935-9 (Version None)
Quarter: 2010Q3

REPORT INFORMATION
  Report Type: 
  Country: None (occurrence: None)
  Receive Date: 20100715
  Receipt Date: 20100706
  Transmission Date: 20110219
  Serious: Yes (Other)
  Sender: FDA-Public Use
  Company Number: US-AMGEN-QUU422556

PATIENT
  Sex: Female

DRUGS (1)
  1. ENBREL [Suspect]
     Indication: RHEUMATOID ARTHRITIS
     Route: 058
     Dates: start: 20001001

REACTIONS (5)
  - DYSPNOEA [None]
  - NIGHT SWEATS [None]
  - NON-HODGKIN'S LYMPHOMA [None]
  - STRIDOR [None]
  - WHEEZING [None]
